FAERS Safety Report 9843536 (Version 1)
Quarter: 2013Q4

REPORT INFORMATION
  Report Type: Spontaneous
  Country: US (occurrence: None)
  Receive Date: 20131219
  Receipt Date: 20131219
  Transmission Date: 20140711
  Serious: Yes (Other)
  Sender: FDA-Public Use
  Company Number: 163-20785-13060139

PATIENT
  Age: 79 Year
  Sex: Male

DRUGS (6)
  1. THALOMID [Suspect]
     Indication: PLASMA CELL MYELOMA
     Route: 048
     Dates: start: 20120327
  2. DILTIAZEM(DILTIAZEM)(UNKNOWN) [Concomitant]
  3. GLIMEPIRIDE(GLIMEPIRIDE)(UNKNOWN) [Concomitant]
  4. LISINOPRIL(LISINOPRIL)(UNKNOWN) [Concomitant]
  5. POTASSIUM(POTASSIUM)(UNKNOWN) [Concomitant]
  6. SODIUM BICARBONATE(SODIUM BICARBONATE)(UNKNOWN) [Concomitant]

REACTIONS (2)
  - Balance disorder [None]
  - Local swelling [None]
